FAERS Safety Report 4687174-2 (Version None)
Quarter: 2005Q2

REPORT INFORMATION
  Report Type: 
  Country: None (occurrence: None)
  Receive Date: 20050609
  Receipt Date: 20050527
  Transmission Date: 20051028
  Serious: Yes (Other)
  Sender: FDA-Public Use
  Company Number: 214870

PATIENT
  Age: 54 Year
  Sex: Female

DRUGS (1)
  1. AVASTIN [Suspect]
     Indication: METASTATIC RENAL CELL CARCINOMA
     Dosage: 5 MG/KG Q2W

REACTIONS (3)
  - DISCOMFORT [None]
  - ORAL SOFT TISSUE DISORDER [None]
  - TONGUE DISORDER [None]
